FAERS Safety Report 10887041 (Version 3)
Quarter: 2015Q2

REPORT INFORMATION
  Report Type: Spontaneous
  Country: US (occurrence: US)
  Receive Date: 20150304
  Receipt Date: 20150501
  Transmission Date: 20150821
  Serious: No
  Sender: FDA-Public Use
  Company Number: US-PFIZER INC-2015076236

PATIENT
  Age: 71 Year
  Sex: Female

DRUGS (3)
  1. LATANOPROST. [Suspect]
     Active Substance: LATANOPROST
     Indication: GLAUCOMA
  2. TIMOLOL [Concomitant]
     Active Substance: TIMOLOL
     Dosage: UNK, 2X/DAY IN EACH EYE
     Route: 047
  3. LATANOPROST. [Suspect]
     Active Substance: LATANOPROST
     Indication: INTRAOCULAR PRESSURE TEST
     Dosage: 20 MG ONCE A DAY, 10 MG TWICE A DAY AT BEDTIME
     Route: 047
     Dates: start: 1990

REACTIONS (3)
  - Drug ineffective [Unknown]
  - Eye pruritus [Unknown]
  - Lacrimation increased [Unknown]
